FAERS Safety Report 15154847 (Version 1)
Quarter: 2018Q4

REPORT INFORMATION
  Report Type: Spontaneous
  Country: US (occurrence: US)
  Receive Date: 20180717
  Receipt Date: 20180717
  Transmission Date: 20190204
  Serious: No
  Sender: FDA-Public Use
  Company Number: US-TARO-2018TAR00369

PATIENT
  Sex: Female

DRUGS (2)
  1. KETOCONAZOLE TABLETS USP 200 MG [Suspect]
     Active Substance: KETOCONAZOLE
     Dosage: 200 MG, 2X/DAY
     Dates: start: 20180512, end: 20180512
  2. KETOCONAZOLE TABLETS USP 200 MG [Suspect]
     Active Substance: KETOCONAZOLE
     Dosage: 200 MG, 1X/DAY
     Dates: start: 20180511, end: 20180511

REACTIONS (8)
  - Headache [Unknown]
  - Restlessness [Unknown]
  - Abdominal discomfort [Unknown]
  - Insomnia [Not Recovered/Not Resolved]
  - Gastrointestinal pain [Recovered/Resolved]
  - Malaise [Unknown]
  - Inappropriate schedule of product administration [Not Recovered/Not Resolved]
  - Flatulence [Recovered/Resolved]

NARRATIVE: CASE EVENT DATE: 20180512
